FAERS Safety Report 7899579-7 (Version None)
Quarter: 2011Q4

REPORT INFORMATION
  Report Type: 
  Country: None (occurrence: None)
  Receive Date: 20111107
  Receipt Date: 20110916
  Transmission Date: 20120403
  Serious: No
  Sender: FDA-Public Use
  Company Number: US-AMGEN-USASP2011047843

PATIENT
  Age: 12 Year
  Sex: Male

DRUGS (6)
  1. LEFLUNOMIDE [Concomitant]
  2. TOBRAMYCIN [Concomitant]
  3. ENBREL [Suspect]
     Indication: PSORIASIS
     Dosage: 12.5 MG, 2 TIMES/WK
     Dates: start: 20110904
  4. HUMATROPE [Concomitant]
  5. PULMOZYME [Concomitant]
  6. SULFASALAZINE [Concomitant]

REACTIONS (1)
  - EPISTAXIS [None]
